FAERS Safety Report 21908594 (Version 4)
Quarter: 2023Q2

REPORT INFORMATION
  Report Type: Spontaneous
  Country: FI (occurrence: FI)
  Receive Date: 20230125
  Receipt Date: 20230407
  Transmission Date: 20230722
  Serious: Yes (Death, Other)
  Sender: FDA-Public Use
  Company Number: FI-JNJFOC-20230148194

PATIENT
  Age: 63 Year

DRUGS (22)
  1. DARZALEX [Suspect]
     Active Substance: DARATUMUMAB
     Indication: Amyloidosis
     Route: 058
     Dates: start: 20221103
  2. DARZALEX [Suspect]
     Active Substance: DARATUMUMAB
     Route: 058
     Dates: start: 20221117
  3. DARZALEX [Suspect]
     Active Substance: DARATUMUMAB
     Route: 058
     Dates: start: 20221208
  4. POTASSIUM CHLORIDE [Concomitant]
     Active Substance: POTASSIUM CHLORIDE
     Dosage: 1X2
  5. PLAVIX [Concomitant]
     Active Substance: CLOPIDOGREL BISULFATE
     Dosage: 1X1
  6. FUROSEMIDE [Concomitant]
     Active Substance: FUROSEMIDE
     Dosage: 2X2
  7. PERINDOPRIL [Concomitant]
     Active Substance: PERINDOPRIL
     Dosage: 1X1
  8. SIMVASTATIN [Concomitant]
     Active Substance: SIMVASTATIN
     Dosage: 1X1
  9. ECONAZOLE NITRATE [Concomitant]
     Active Substance: ECONAZOLE NITRATE
     Dosage: 1/10 MG/G EO
  10. DAIVOBET [Concomitant]
     Active Substance: BETAMETHASONE DIPROPIONATE\CALCIPOTRIENE
     Dosage: 50/500 MICROG/G 1X1
  11. LOCOID [Concomitant]
     Active Substance: HYDROCORTISONE BUTYRATE
     Dosage: 1X1
  12. APOLAR [Concomitant]
  13. TACROLIMUS [Concomitant]
     Active Substance: TACROLIMUS
  14. DEXAMETHASONE [Concomitant]
     Active Substance: DEXAMETHASONE
  15. PREDNISOLONE [Concomitant]
     Active Substance: PREDNISOLONE
     Dosage: PAUSE?5 MG HALFX1
  16. LEVOTHYROXINE [Concomitant]
     Active Substance: LEVOTHYROXINE
     Dosage: 100 MICROG EO
  17. ACYRAX [ACICLOVIR] [Concomitant]
     Dosage: 0,5X1
  18. HYDREA [Concomitant]
     Active Substance: HYDROXYUREA
     Dosage: 2X1
  19. LYRICA [Concomitant]
     Active Substance: PREGABALIN
     Dosage: 1-2X1-2
  20. ALBUTEROL SULFATE [Concomitant]
     Active Substance: ALBUTEROL SULFATE
     Dosage: 100 MICROG/DOSE 1-2X1-4
  21. SERETIDE DISKUS [FLUTICASONE;SALMETEROL] [Concomitant]
     Dosage: 50/250 MICROG/DOSE 1X2
  22. CETIRIZINE HYDROCHLORIDE [Concomitant]
     Active Substance: CETIRIZINE HYDROCHLORIDE
     Dosage: 1X1

REACTIONS (4)
  - Cerebral infarction [Fatal]
  - Condition aggravated [Unknown]
  - Dyspnoea [Unknown]
  - Restless legs syndrome [Unknown]
